FAERS Safety Report 7442502-X (Version None)
Quarter: 2011Q2

REPORT INFORMATION
  Report Type: 
  Country: None (occurrence: None)
  Receive Date: 20110425
  Receipt Date: 20110425
  Transmission Date: 20111010
  Serious: Yes (Life-Threatening, Hospitalization)
  Sender: FDA-Public Use
  Company Number: None

PATIENT
  Age: 41 Year
  Sex: Female
  Weight: 68.0396 kg

DRUGS (1)
  1. TRETINOIN [Suspect]
     Indication: SKIN IRRITATION
     Dosage: 0.1% THIN LAYER DAILY AT NIGHT TOP
     Route: 061
     Dates: start: 20110414, end: 20110415

REACTIONS (7)
  - CHEST PAIN [None]
  - DRUG HYPERSENSITIVITY [None]
  - SCAB [None]
  - BLOOD PRESSURE INCREASED [None]
  - DYSPNOEA [None]
  - SKIN CHAPPED [None]
  - SKIN IRRITATION [None]
